FAERS Safety Report 8446008-0 (Version None)
Quarter: 2012Q2

REPORT INFORMATION
  Report Type: 
  Country: None (occurrence: None)
  Receive Date: 20120323
  Receipt Date: 20110930
  Transmission Date: 20120825
  Serious: Yes (Other)
  Sender: FDA-Public Use
  Company Number: 163-21880-11090614

PATIENT
  Age: 55 Year
  Sex: Male
  Weight: 52.1637 kg

DRUGS (1)
  1. REVLIMID [Suspect]
     Indication: MULTIPLE MYELOMA
     Dosage: 25 MG, DAILY X 21 Q 28 DAYS, PO
     Route: 048
     Dates: start: 20110531

REACTIONS (3)
  - CONDITION AGGRAVATED [None]
  - THROMBOSIS [None]
  - OEDEMA PERIPHERAL [None]
